FAERS Safety Report 6493280-2 (Version None)
Quarter: 2009Q4

REPORT INFORMATION
  Report Type: 
  Country: None (occurrence: None)
  Receive Date: 20091209
  Receipt Date: 20091124
  Transmission Date: 20100525
  Serious: Yes (Death, Other)
  Sender: FDA-Public Use
  Company Number: CLOF-1000774

PATIENT
  Age: 67 Year
  Sex: Male

DRUGS (2)
  1. CLOLAR [Suspect]
     Indication: ACUTE MYELOID LEUKAEMIA
     Dosage: 20 MG/M2, QDX5, INTRAVENOUS
     Route: 042
  2. CYTARABINE [Suspect]
     Indication: ACUTE MYELOID LEUKAEMIA
     Dosage: 100 MG/M2, QD, DAYS 1-7, 24 HR. CONTINUOUS, INTRAVENOUS
     Route: 042

REACTIONS (3)
  - AORTIC THROMBOSIS [None]
  - CEREBRAL HAEMORRHAGE [None]
  - HAEMORRHAGE [None]
